FAERS Safety Report 7912141-2 (Version None)
Quarter: 2011Q4

REPORT INFORMATION
  Report Type: 
  Country: None (occurrence: None)
  Receive Date: 20111114
  Receipt Date: 20111111
  Transmission Date: 20120403
  Serious: Yes (Other)
  Sender: FDA-Public Use
  Company Number: US-PFIZER INC-2011277343

PATIENT
  Sex: Male
  Weight: 119 kg

DRUGS (3)
  1. QUINAPRIL HCL + HYDROCHLOROTHIAZIDE [Suspect]
     Indication: HYPERTENSION
     Dosage: DAILY
     Dates: start: 20060101
  2. LEXAPRO [Concomitant]
     Indication: DEPRESSION
     Dosage: 10 MG, DAILY
  3. QUINAPRIL HCL + HYDROCHLOROTHIAZIDE [Suspect]
     Indication: PROPHYLAXIS

REACTIONS (3)
  - LOWER RESPIRATORY TRACT INFECTION [None]
  - INFLUENZA LIKE ILLNESS [None]
  - DYSPHONIA [None]
